FAERS Safety Report 7461578-7 (Version None)
Quarter: 2011Q2

REPORT INFORMATION
  Report Type: 
  Country: None (occurrence: None)
  Receive Date: 20110428
  Receipt Date: 20110408
  Transmission Date: 20111010
  Serious: Yes (Hospitalization)
  Sender: FDA-Public Use
  Company Number: JPI-P-014137

PATIENT
  Age: 69 Year
  Sex: Female
  Weight: 98.8842 kg

DRUGS (8)
  1. POTASSIUM [Concomitant]
  2. HYDROCHLOROTHIAZIDE AND TRIAMTERENE [Concomitant]
  3. UNSPECIFIED BLOOD PRESSURE MEDICATIONS [Concomitant]
  4. UNSPECIFIED MEDICATIONS [Concomitant]
  5. XYREM [Suspect]
     Indication: SOMNOLENCE
     Dosage: 4.5 GM (2.25 GM, 2 IN 1 D), ORAL; 6 GM (3 GM, 2 IN 1 D), ORAL
     Route: 048
     Dates: start: 20110209, end: 20110301
  6. XYREM [Suspect]
     Indication: CATAPLEXY
     Dosage: 4.5 GM (2.25 GM, 2 IN 1 D), ORAL; 6 GM (3 GM, 2 IN 1 D), ORAL
     Route: 048
     Dates: start: 20110209, end: 20110301
  7. XYREM [Suspect]
     Indication: SOMNOLENCE
     Dosage: 4.5 GM (2.25 GM, 2 IN 1 D), ORAL; 6 GM (3 GM, 2 IN 1 D), ORAL
     Route: 048
     Dates: start: 20110302, end: 20110311
  8. XYREM [Suspect]
     Indication: CATAPLEXY
     Dosage: 4.5 GM (2.25 GM, 2 IN 1 D), ORAL; 6 GM (3 GM, 2 IN 1 D), ORAL
     Route: 048
     Dates: start: 20110302, end: 20110311

REACTIONS (7)
  - FEELING JITTERY [None]
  - OEDEMA PERIPHERAL [None]
  - MUSCLE SPASMS [None]
  - DIZZINESS [None]
  - BLOOD PRESSURE INCREASED [None]
  - CHEST PAIN [None]
  - OEDEMA [None]
